FAERS Safety Report 20859771 (Version 1)
Quarter: 2022Q2

REPORT INFORMATION
  Report Type: Spontaneous
  Country: DE (occurrence: DE)
  Receive Date: 20220523
  Receipt Date: 20220523
  Transmission Date: 20220721
  Serious: Yes (Other)
  Sender: FDA-Public Use
  Company Number: DE-BFARM-22003027

PATIENT
  Age: 27 Year
  Sex: Female

DRUGS (1)
  1. CLARITHROMYCIN [Suspect]
     Active Substance: CLARITHROMYCIN
     Indication: Helicobacter gastritis
     Dosage: 1000 MILLIGRAM, DAILY (CLARITHROMYCIN 500)
     Route: 065
     Dates: start: 20210823, end: 20210829

REACTIONS (4)
  - Palpitations [Recovered/Resolved]
  - Abdominal pain upper [Recovered/Resolved]
  - Hallucination [Recovered/Resolved]
  - Malaise [Recovered/Resolved]

NARRATIVE: CASE EVENT DATE: 20210823
